FAERS Safety Report 9939560 (Version 1)
Quarter: 2014Q1

REPORT INFORMATION
  Report Type: Report from Study
  Country: US (occurrence: US)
  Receive Date: 20140303
  Receipt Date: 20140303
  Transmission Date: 20141002
  Serious: No
  Sender: FDA-Public Use
  Company Number: US-ABBVIE-13P-163-1034599-00

PATIENT
  Sex: Female

DRUGS (2)
  1. HUMIRA [Suspect]
     Indication: RHEUMATOID ARTHRITIS
     Dates: start: 201001
  2. HUMIRA [Suspect]
     Indication: CROHN^S DISEASE

REACTIONS (6)
  - Pain [Unknown]
  - Musculoskeletal stiffness [Unknown]
  - Joint swelling [Unknown]
  - Abdominal pain [Unknown]
  - Haematochezia [Unknown]
  - Inappropriate schedule of drug administration [Unknown]
